FAERS Safety Report 6009118-3 (Version None)
Quarter: 2008Q4

REPORT INFORMATION
  Report Type: 
  Country: None (occurrence: None)
  Receive Date: 20081216
  Receipt Date: 20081204
  Transmission Date: 20090506
  Serious: Yes (Other)
  Sender: FDA-Public Use
  Company Number: 20711

PATIENT
  Age: 13 Year
  Sex: Female

DRUGS (6)
  1. METHOTREXATE [Suspect]
     Dosage: 20 MG WEEKLY
     Dates: start: 20070821
  2. ACETAMINOPHEN W/ CODEINE [Concomitant]
  3. FOLIC ACID [Concomitant]
  4. OMEPRAZOLE [Concomitant]
  5. PREDNISOLONE [Concomitant]
  6. TRIAMCINOLONE HEXACETONIDE [Concomitant]

REACTIONS (2)
  - MOUTH ULCERATION [None]
  - OROPHARYNGEAL PAIN [None]
